FAERS Safety Report 6367670-2 (Version None)
Quarter: 2009Q3

REPORT INFORMATION
  Report Type: 
  Country: None (occurrence: None)
  Receive Date: 20090921
  Receipt Date: 20090910
  Transmission Date: 20100115
  Serious: Yes (Hospitalization, Other)
  Sender: FDA-Public Use
  Company Number: BR-AVENTIS-200920364GDDC

PATIENT
  Age: 64 Year
  Sex: Female

DRUGS (13)
  1. LANTUS [Suspect]
     Route: 058
  2. OPTIPEN (INSULIN PUMP) [Suspect]
  3. NOVORAPID [Concomitant]
     Dosage: DOSE: 10-12 IU AFTER BREAKFAST
     Route: 058
  4. HYGROTON [Concomitant]
     Dosage: DOSE QUANTITY: 1
     Route: 048
     Dates: start: 20090910
  5. PURAN T4 [Concomitant]
     Indication: THYROID DISORDER
     Dosage: DOSE: 30 MINUTES BEFORE BREAKFAST
     Route: 048
     Dates: start: 20090101
  6. ENALAPRIL MALEATE [Concomitant]
     Indication: BLOOD PRESSURE
     Dosage: DOSE: 1 TAB IN THE MORNING AND ONE TAB AT NIGHT
     Route: 048
     Dates: start: 20090101
  7. ISOSORBIDE MONONITRATE [Concomitant]
     Dosage: DOSE: 1 TAB IN THE MORNING PLUS ONE TAB AT NIGHT
     Route: 048
     Dates: start: 20090101
  8. SELOZOK [Concomitant]
     Dosage: DOSE: 1 TAB AFTER BREAKFAST
     Route: 048
     Dates: start: 20090101
  9. AMIODARONE HYDROCHLORIDE [Concomitant]
     Dosage: DOSE: 1 TAB IN THE MORNING
     Route: 048
     Dates: start: 20090101
  10. AAS PROTECT [Concomitant]
     Dosage: DOSE: 1 TAB AFTER LUNCH
     Route: 048
     Dates: start: 20090101
  11. CLOPIDOGREL BISULFATE [Concomitant]
     Dosage: DOSE: 1 TAB AFTER LUNCH
     Route: 048
     Dates: start: 20090101
  12. LIPITOR [Concomitant]
     Dosage: DOSE: 1 TAB AFTER DINNER
     Route: 048
     Dates: start: 20090101
  13. PASALIX [Concomitant]
     Dosage: DOSE: 100MG/100MG/30MG (1 TAB BEFORE SLEEP)
     Route: 048
     Dates: start: 20090101

REACTIONS (7)
  - HYPERGLYCAEMIA [None]
  - HYPERHIDROSIS [None]
  - HYPERTENSION [None]
  - HYPOGLYCAEMIA [None]
  - INFARCTION [None]
  - PULMONARY OEDEMA [None]
  - TREMOR [None]
